FAERS Safety Report 23998774 (Version 1)
Quarter: 2024Q2

REPORT INFORMATION
  Report Type: Other
  Country: DE (occurrence: DE)
  Receive Date: 20240621
  Receipt Date: 20240621
  Transmission Date: 20240716
  Serious: Yes (Other)
  Sender: FDA-Public Use
  Company Number: None

PATIENT

DRUGS (9)
  1. PANTOPRAZOLE [Suspect]
     Active Substance: PANTOPRAZOLE
     Indication: Product used for unknown indication
     Dosage: UNKNOWN
     Route: 065
  2. TRANEXAMIC ACID [Suspect]
     Active Substance: TRANEXAMIC ACID
     Indication: Product used for unknown indication
     Dosage: UNKNOWN
     Route: 065
  3. OMEPRAZOLE [Suspect]
     Active Substance: OMEPRAZOLE
     Indication: Product used for unknown indication
     Dosage: UNKNOWN
     Route: 065
  4. ERYTHROMYCIN [Suspect]
     Active Substance: ERYTHROMYCIN
     Indication: Product used for unknown indication
     Dosage: UNKNOWN
     Route: 065
  5. DESLORATADINE [Suspect]
     Active Substance: DESLORATADINE
     Indication: Seasonal allergy
     Dosage: UNKNOWN
     Route: 065
  6. DESLORATADINE [Suspect]
     Active Substance: DESLORATADINE
     Indication: Urticaria
  7. CLARITHROMYCIN [Suspect]
     Active Substance: CLARITHROMYCIN
     Indication: Product used for unknown indication
     Dosage: UNKNOWN
     Route: 065
  8. DDAVP [Suspect]
     Active Substance: DESMOPRESSIN ACETATE
     Indication: Product used for unknown indication
     Dosage: UNKNOWN
     Route: 065
  9. CETIRIZINE [Concomitant]
     Active Substance: CETIRIZINE HYDROCHLORIDE
     Indication: Product used for unknown indication
     Dosage: DROPS IF REQUIRED AND IN CASE OF EMERGENCY.
     Route: 065

REACTIONS (17)
  - Syncope [Unknown]
  - Nausea [Unknown]
  - Migraine [Unknown]
  - Myalgia [Unknown]
  - Abdominal discomfort [Unknown]
  - Visual impairment [Unknown]
  - Cardiovascular disorder [Unknown]
  - Rash [Unknown]
  - Dyspnoea [Unknown]
  - Diarrhoea [Unknown]
  - Muscle spasms [Unknown]
  - Hypersensitivity [Unknown]
  - Mouth swelling [Unknown]
  - Arthralgia [Unknown]
  - Swollen tongue [Unknown]
  - Dizziness [Unknown]
  - Drug interaction [Unknown]
